FAERS Safety Report 21200108 (Version 5)
Quarter: 2023Q2

REPORT INFORMATION
  Report Type: Report from Study
  Country: PT (occurrence: None)
  Receive Date: 20220811
  Receipt Date: 20230426
  Transmission Date: 20230721
  Serious: Yes (Hospitalization)
  Sender: FDA-Public Use
  Company Number: PT-ROCHE-3157234

PATIENT
  Age: 72 Year
  Sex: Male

DRUGS (38)
  1. CABOZANTINIB [Suspect]
     Active Substance: CABOZANTINIB
     Indication: Hormone-refractory prostate cancer
     Dosage: ON 29/JUN/2022, HE RECEIVED THE MOST RECENT DOSE OF XL184 PRIOR TO AE/SAE.
     Route: 048
     Dates: start: 20220519, end: 20220531
  2. CABOZANTINIB [Suspect]
     Active Substance: CABOZANTINIB
     Route: 048
     Dates: start: 20220601, end: 20220629
  3. CABOZANTINIB [Suspect]
     Active Substance: CABOZANTINIB
     Route: 048
     Dates: start: 20220707, end: 20220907
  4. CABOZANTINIB [Suspect]
     Active Substance: CABOZANTINIB
     Route: 048
     Dates: start: 20220923, end: 20221013
  5. ATEZOLIZUMAB [Suspect]
     Active Substance: ATEZOLIZUMAB
     Indication: Hormone-refractory prostate cancer
     Dosage: ON 29/JUN/2022, HE RECEIVED THE MOST RECENT DOSE OF ATEZOLIZUMAB  PRIOR TO AE/SAE
     Route: 041
     Dates: start: 20220519
  6. ATEZOLIZUMAB [Suspect]
     Active Substance: ATEZOLIZUMAB
     Route: 042
     Dates: start: 20220609
  7. ATEZOLIZUMAB [Suspect]
     Active Substance: ATEZOLIZUMAB
     Route: 042
     Dates: start: 20220707
  8. ATEZOLIZUMAB [Suspect]
     Active Substance: ATEZOLIZUMAB
     Route: 042
     Dates: start: 20220728
  9. ATEZOLIZUMAB [Suspect]
     Active Substance: ATEZOLIZUMAB
     Route: 042
     Dates: start: 20220818
  10. ATEZOLIZUMAB [Suspect]
     Active Substance: ATEZOLIZUMAB
     Route: 042
     Dates: start: 20220923
  11. CALCITAB D [Concomitant]
     Dates: start: 20210115
  12. PANTOPRAZOLE [Concomitant]
     Active Substance: PANTOPRAZOLE
     Dates: start: 20170115
  13. TRIPTORELIN [Concomitant]
     Active Substance: TRIPTORELIN
     Dates: start: 20170209
  14. ASPIRIN [Concomitant]
     Active Substance: ASPIRIN
     Dates: start: 202101
  15. BUPRENORPHINE [Concomitant]
     Active Substance: BUPRENORPHINE
     Dates: start: 20220630
  16. FENTANYL [Concomitant]
     Active Substance: FENTANYL
     Dates: start: 202204
  17. LACTULOSE [Concomitant]
     Active Substance: LACTULOSE
     Dates: start: 20220630
  18. LERCANIDIPINE [Concomitant]
     Active Substance: LERCANIDIPINE
  19. LISINOPRIL [Concomitant]
     Active Substance: LISINOPRIL
     Dates: start: 2000
  20. LISINOPRIL [Concomitant]
     Active Substance: LISINOPRIL
     Dates: start: 20220630
  21. LORAZEPAM [Concomitant]
     Active Substance: LORAZEPAM
     Dates: start: 1982
  22. LORAZEPAM [Concomitant]
     Active Substance: LORAZEPAM
     Dates: start: 20220630
  23. METOCLOPRAMIDE [Concomitant]
     Active Substance: METOCLOPRAMIDE
     Dates: start: 20220630
  24. SODIUM CITRATE\SODIUM LAURYL SULFOACETATE\SORBITOL [Concomitant]
     Active Substance: SODIUM CITRATE\SODIUM LAURYL SULFOACETATE\SORBITOL
     Dates: start: 20220630
  25. MORPHINE [Concomitant]
     Active Substance: MORPHINE
     Dates: start: 20220601, end: 20220601
  26. SODIUM PICOSULFATE [Concomitant]
     Active Substance: SODIUM PICOSULFATE
     Dates: start: 20220630
  27. PREDNISOLONE [Concomitant]
     Active Substance: PREDNISOLONE
     Dates: start: 202205
  28. PREDNISOLONE [Concomitant]
     Active Substance: PREDNISOLONE
     Dates: start: 20220401, end: 20220704
  29. TAMSULOSIN HYDROCHLORIDE [Concomitant]
     Active Substance: TAMSULOSIN HYDROCHLORIDE
     Dates: start: 201611
  30. TAMSULOSIN HYDROCHLORIDE [Concomitant]
     Active Substance: TAMSULOSIN HYDROCHLORIDE
     Dates: start: 20161101
  31. SERTRALINE [Concomitant]
     Active Substance: SERTRALINE HYDROCHLORIDE
     Dates: start: 2020
  32. SERTRALINE [Concomitant]
     Active Substance: SERTRALINE HYDROCHLORIDE
     Dates: start: 20200101
  33. PREGABALIN [Concomitant]
     Active Substance: PREGABALIN
     Dates: start: 202204
  34. BETAHISTINE [Concomitant]
     Active Substance: BETAHISTINE
     Dates: start: 202204
  35. LACTULOSE [Concomitant]
     Active Substance: LACTULOSE
     Dates: start: 202204
  36. PURSENNIDE [Concomitant]
     Dates: start: 202204
  37. AMITRIPTYLINE HYDROCHLORIDE [Concomitant]
     Active Substance: AMITRIPTYLINE HYDROCHLORIDE
     Dates: start: 20220422
  38. ACETAMINOPHEN [Concomitant]
     Active Substance: ACETAMINOPHEN
     Dates: start: 20220601, end: 20220601

REACTIONS (2)
  - Somnolence [Recovered/Resolved]
  - Confusional state [Recovered/Resolved]

NARRATIVE: CASE EVENT DATE: 20220630
